FAERS Safety Report 7989026-9 (Version None)
Quarter: 2011Q4

REPORT INFORMATION
  Report Type: 
  Country: None (occurrence: None)
  Receive Date: 20111215
  Receipt Date: 20111215
  Transmission Date: 20120403
  Serious: Yes (Hospitalization)
  Sender: FDA-Public Use
  Company Number: None

PATIENT
  Age: 68 Year
  Sex: Male
  Weight: 64.7 kg

DRUGS (2)
  1. LORAZEPAM [Suspect]
     Indication: TOXICITY TO VARIOUS AGENTS
     Dosage: MG PO
     Route: 048
  2. GABAPENTIN [Suspect]
     Indication: TOXICITY TO VARIOUS AGENTS

REACTIONS (3)
  - LETHARGY [None]
  - DELIRIUM [None]
  - AGITATION [None]
